FAERS Safety Report 8585055-5 (Version None)
Quarter: 2012Q2

REPORT INFORMATION
  Report Type: 
  Country: None (occurrence: None)
  Receive Date: 20120423
  Receipt Date: 20091113
  Transmission Date: 20120825
  Serious: Yes (Other)
  Sender: FDA-Public Use
  Company Number: PHEH2009US14718

PATIENT
  Sex: Male

DRUGS (3)
  1. EXJADE [Suspect]
     Indication: SICKLE CELL ANAEMIA
     Dosage: 500 MG, QD, ORAL 1000 MG, QD, ORAL 750 MG, QD, ORAL
     Route: 048
     Dates: start: 20090701
  2. EXJADE [Suspect]
     Indication: SICKLE CELL ANAEMIA
     Dosage: 500 MG, QD, ORAL 1000 MG, QD, ORAL 750 MG, QD, ORAL
     Route: 048
     Dates: start: 20091023
  3. EXJADE [Suspect]
     Indication: SICKLE CELL ANAEMIA
     Dosage: 500 MG, QD, ORAL 1000 MG, QD, ORAL 750 MG, QD, ORAL
     Route: 048
     Dates: start: 20080911, end: 20090701

REACTIONS (4)
  - ASPARTATE AMINOTRANSFERASE INCREASED [None]
  - BLOOD BILIRUBIN INCREASED [None]
  - HEPATIC ENZYME INCREASED [None]
  - ALANINE AMINOTRANSFERASE INCREASED [None]
